FAERS Safety Report 4488242-0 (Version None)
Quarter: 2004Q4

REPORT INFORMATION
  Report Type: 
  Country: None (occurrence: None)
  Receive Date: 20041028
  Receipt Date: 20041021
  Transmission Date: 20050328
  Serious: Yes (Hospitalization)
  Sender: FDA-Public Use
  Company Number: PHRM2004FR03151

PATIENT
  Age: 5 Year
  Sex: Female
  Weight: 16 kg

DRUGS (3)
  1. NEORAL [Suspect]
     Indication: RENAL TRANSPLANT
     Dosage: 450 MG, BID
     Route: 048
     Dates: start: 20040924, end: 20040926
  2. IMUREL [Concomitant]
     Indication: RENAL TRANSPLANT
     Dosage: UNK, UNK
  3. CORTANCYL [Concomitant]

REACTIONS (5)
  - BLOOD AMYLASE INCREASED [None]
  - BLOOD CREATININE INCREASED [None]
  - DRUG LEVEL INCREASED [None]
  - LIPASE INCREASED [None]
  - MEDICATION ERROR [None]
